FAERS Safety Report 25082570 (Version 1)
Quarter: 2025Q1

REPORT INFORMATION
  Report Type: Spontaneous
  Country: CO (occurrence: CO)
  Receive Date: 20250317
  Receipt Date: 20250317
  Transmission Date: 20250408
  Serious: Yes (Hospitalization, Other)
  Sender: NOVO NORDISK
  Company Number: CO-NOVOPROD-1386015

PATIENT
  Age: 34 Year
  Sex: Female
  Weight: 93 kg

DRUGS (3)
  1. SAXENDA [Suspect]
     Active Substance: LIRAGLUTIDE
     Indication: Obesity
     Dosage: 3 MG, QD
     Route: 058
     Dates: start: 202303, end: 20241126
  2. TAPENTADOL [Concomitant]
     Active Substance: TAPENTADOL
     Indication: Pain
     Dosage: 50 MG, BID
     Route: 048
     Dates: start: 2022
  3. PREGABALIN [Concomitant]
     Active Substance: PREGABALIN
     Indication: Pain
     Dosage: 75 MG, TID(EVERY 8 HOURS)
     Route: 048
     Dates: start: 20220707

REACTIONS (3)
  - Road traffic accident [Not Recovered/Not Resolved]
  - Ankle fracture [Not Recovered/Not Resolved]
  - Ligament injury [Not Recovered/Not Resolved]

NARRATIVE: CASE EVENT DATE: 20240829
